FAERS Safety Report 24141847 (Version 1)
Quarter: 2024Q3

REPORT INFORMATION
  Report Type: Spontaneous
  Country: JP (occurrence: JP)
  Receive Date: 20240726
  Receipt Date: 20240726
  Transmission Date: 20241016
  Serious: Yes (Other)
  Sender: AMGEN
  Company Number: JP-AMGEN-JPNSP2024145134

PATIENT
  Age: 82 Year
  Sex: Female

DRUGS (1)
  1. BLINCYTO [Suspect]
     Active Substance: BLINATUMOMAB
     Indication: Acute lymphocytic leukaemia
     Dosage: UNK, DRIP INFUSION
     Route: 042
     Dates: end: 20240719

REACTIONS (2)
  - Acute lymphocytic leukaemia [Unknown]
  - Abdominal pain upper [Recovering/Resolving]
